FAERS Safety Report 14199325 (Version 1)
Quarter: 2017Q4

REPORT INFORMATION
  Report Type: Spontaneous
  Country: US (occurrence: None)
  Receive Date: 20171116
  Receipt Date: 20171116
  Transmission Date: 20180321
  Serious: Yes (Hospitalization)
  Sender: FDA-Public Use
  Company Number: None

PATIENT
  Age: 88 Year
  Sex: Female

DRUGS (12)
  1. VENTOLIN [Concomitant]
     Active Substance: ALBUTEROL SULFATE
  2. GLIPIZIDE. [Concomitant]
     Active Substance: GLIPIZIDE
  3. ESBRIET [Suspect]
     Active Substance: PIRFENIDONE
     Indication: PULMONARY FIBROSIS
     Route: 048
     Dates: start: 20170220
  4. ASPIRIN. [Concomitant]
     Active Substance: ASPIRIN
  5. SINGULAIR [Concomitant]
     Active Substance: MONTELUKAST SODIUM
  6. LISINOPRIL/HCTZ [Concomitant]
     Active Substance: HYDROCHLOROTHIAZIDE\LISINOPRIL
  7. LEVOTHYROXINE. [Concomitant]
     Active Substance: LEVOTHYROXINE
  8. PLAVIX [Concomitant]
     Active Substance: CLOPIDOGREL BISULFATE
  9. POT. CHLORIDE [Concomitant]
  10. HUMALOG [Concomitant]
     Active Substance: INSULIN LISPRO
  11. SIMVASTATIN. [Concomitant]
     Active Substance: SIMVASTATIN
  12. LANTUS [Concomitant]
     Active Substance: INSULIN GLARGINE

REACTIONS (1)
  - Cardiac failure congestive [None]

NARRATIVE: CASE EVENT DATE: 20171015
